FAERS Safety Report 8130783-9 (Version None)
Quarter: 2012Q1

REPORT INFORMATION
  Report Type: 
  Country: None (occurrence: None)
  Receive Date: 20120213
  Receipt Date: 20120203
  Transmission Date: 20120608
  Serious: No
  Sender: FDA-Public Use
  Company Number: US-BIOGENIDEC-2012BI004520

PATIENT
  Age: 56 Year
  Sex: Female

DRUGS (1)
  1. TYSABRI [Suspect]
     Indication: MULTIPLE SCLEROSIS
     Route: 042

REACTIONS (4)
  - BLOOD POTASSIUM DECREASED [None]
  - HYPOAESTHESIA [None]
  - FEELING OF BODY TEMPERATURE CHANGE [None]
  - DYSGEUSIA [None]
